FAERS Safety Report 4479579-X (Version None)
Quarter: 2004Q4

REPORT INFORMATION
  Report Type: 
  Country: None (occurrence: None)
  Receive Date: 20041018
  Receipt Date: 20041006
  Transmission Date: 20050328
  Serious: Yes (Hospitalization)
  Sender: FDA-Public Use
  Company Number: 2004077006

PATIENT
  Age: 52 Year
  Sex: Female

DRUGS (3)
  1. MINOXIDIL [Suspect]
     Dosage: TOPICAL
     Route: 061
  2. ENALAPRIL MALEATE [Concomitant]
  3. METOPROLOL SUCCINATE [Concomitant]

REACTIONS (3)
  - BLOOD PRESSURE DECREASED [None]
  - CARDIAC FLUTTER [None]
  - DIZZINESS [None]
